FAERS Safety Report 7305406-9 (Version None)
Quarter: 2011Q1

REPORT INFORMATION
  Report Type: 
  Country: None (occurrence: None)
  Receive Date: 20110210
  Receipt Date: 20110127
  Transmission Date: 20110831
  Serious: Yes (Other)
  Sender: FDA-Public Use
  Company Number: 022040

PATIENT
  Age: 21 Year
  Sex: Female

DRUGS (2)
  1. KEPPRA [Suspect]
     Indication: PARTIAL SEIZURES
     Dosage: 750 MG, 500 MG TAB ORAL
     Route: 048
     Dates: start: 20101031, end: 20101109
  2. TEGRETOL [Suspect]
     Dosage: 350 MG
     Dates: start: 20100801

REACTIONS (1)
  - PLATELET COUNT DECREASED [None]
